FAERS Safety Report 18889551 (Version 2)
Quarter: 2022Q3

REPORT INFORMATION
  Report Type: Spontaneous
  Country: US (occurrence: US)
  Receive Date: 20210213
  Receipt Date: 20220908
  Transmission Date: 20221027
  Serious: Yes (Other)
  Sender: FDA-Public Use
  Company Number: US-SA-SAC20210210000935

PATIENT
  Age: 45 Year
  Sex: Female

DRUGS (1)
  1. ZANTAC [Suspect]
     Active Substance: RANITIDINE HYDROCHLORIDE
     Indication: Dyspepsia
     Dosage: 150 MG, QD
     Route: 048
     Dates: start: 200001, end: 201909

REACTIONS (2)
  - Renal cancer [Unknown]
  - Skin cancer [Unknown]

NARRATIVE: CASE EVENT DATE: 20130201
